FAERS Safety Report 7315467-9 (Version None)
Quarter: 2011Q1

REPORT INFORMATION
  Report Type: 
  Country: None (occurrence: None)
  Receive Date: 20110225
  Receipt Date: 20110222
  Transmission Date: 20110831
  Serious: Yes (Hospitalization, Other)
  Sender: FDA-Public Use
  Company Number: VE-PFIZER INC-2011038431

PATIENT
  Age: 50 Year
  Sex: Female

DRUGS (3)
  1. METFORMIN HYDROCHLORIDE/VILDAGLIPTIN [Concomitant]
     Indication: DIABETES MELLITUS
     Dosage: 50/850 MG, 2X/DAY
     Route: 048
  2. SPIRIVA [Concomitant]
     Indication: CHRONIC OBSTRUCTIVE PULMONARY DISEASE
     Dosage: 18 MG, 1X/DAY
     Route: 048
  3. CHAMPIX [Suspect]
     Indication: SMOKING CESSATION THERAPY
     Dosage: 0.5 MG, 2X/DAY
     Route: 048
     Dates: start: 20101123, end: 20101201

REACTIONS (1)
  - BRONCHOSPASM [None]
